FAERS Safety Report 9279236 (Version 1)
Quarter: 2013Q2

REPORT INFORMATION
  Report Type: Spontaneous
  Country: US (occurrence: US)
  Receive Date: 20130508
  Receipt Date: 20130508
  Transmission Date: 20140414
  Serious: Yes (Death)
  Sender: FDA-Public Use
  Company Number: CHPA2013US007844

PATIENT
  Sex: Male

DRUGS (1)
  1. EXCEDRIN UNKNOWN [Suspect]
     Indication: CARDIOVASCULAR EVENT PROPHYLAXIS
     Dosage: UNK, UNK
     Route: 048

REACTIONS (4)
  - Embolism [Fatal]
  - Arterial occlusive disease [Fatal]
  - Ulcer haemorrhage [Fatal]
  - Off label use [Unknown]
